FAERS Safety Report 6620569-6 (Version None)
Quarter: 2010Q1

REPORT INFORMATION
  Report Type: 
  Country: None (occurrence: None)
  Receive Date: 20100309
  Receipt Date: 20100303
  Transmission Date: 20100710
  Serious: Yes (Other)
  Sender: FDA-Public Use
  Company Number: US-RB-002124-10

PATIENT
  Sex: Male

DRUGS (1)
  1. SUBOXONE [Suspect]
     Route: 060

REACTIONS (4)
  - DIARRHOEA [None]
  - HYPERHIDROSIS [None]
  - SUICIDAL IDEATION [None]
  - VOMITING [None]
